FAERS Safety Report 18849143 (Version 1)
Quarter: 2021Q1

REPORT INFORMATION
  Report Type: Report from Study
  Country: US (occurrence: US)
  Receive Date: 20210205
  Receipt Date: 20210205
  Transmission Date: 20210419
  Serious: No
  Sender: FDA-Public Use
  Company Number: NVSC2021US019823

PATIENT
  Age: 35 Year
  Sex: Male
  Weight: 92.99 kg

DRUGS (1)
  1. KESIMPTA [Suspect]
     Active Substance: OFATUMUMAB
     Indication: PRODUCT USED FOR UNKNOWN INDICATION
     Dosage: 20 MG, QMO
     Route: 058
     Dates: start: 20201002

REACTIONS (6)
  - SARS-CoV-2 test positive [Recovering/Resolving]
  - Anosmia [Recovering/Resolving]
  - Abdominal pain upper [Unknown]
  - Ageusia [Recovering/Resolving]
  - Diarrhoea [Unknown]
  - Nausea [Unknown]

NARRATIVE: CASE EVENT DATE: 20201030
